FAERS Safety Report 5534608-7 (Version None)
Quarter: 2007Q4

REPORT INFORMATION
  Report Type: 
  Country: None (occurrence: None)
  Receive Date: 20071204
  Receipt Date: 20071204
  Transmission Date: 20080405
  Serious: Yes (Life-Threatening, Hospitalization)
  Sender: FDA-Public Use
  Company Number: None

PATIENT
  Age: 57 Year
  Sex: Female
  Weight: 70.3075 kg

DRUGS (1)
  1. LEVAQUIN [Suspect]
     Indication: BRONCHITIS
     Dosage: 1 DAILY PO
     Route: 048
     Dates: start: 20071120, end: 20071120

REACTIONS (9)
  - ACTIVITIES OF DAILY LIVING IMPAIRED [None]
  - ASTHENIA [None]
  - BLOOD GLUCOSE INCREASED [None]
  - DYSPNOEA [None]
  - GASTRITIS [None]
  - HYPERTENSION [None]
  - ILL-DEFINED DISORDER [None]
  - PRURITUS [None]
  - VOMITING [None]
